FAERS Safety Report 8478462-2 (Version None)
Quarter: 2012Q2

REPORT INFORMATION
  Report Type: 
  Country: None (occurrence: None)
  Receive Date: 20120629
  Receipt Date: 20120502
  Transmission Date: 20120825
  Serious: No
  Sender: FDA-Public Use
  Company Number: US-ABBOTT-12P-163-0931837-00

PATIENT
  Age: 57 Year
  Sex: Male

DRUGS (1)
  1. NORVIR [Suspect]
     Indication: HIV INFECTION
     Route: 048
     Dates: start: 20120401

REACTIONS (3)
  - DYSPHAGIA [None]
  - LOCAL SWELLING [None]
  - ASTHENIA [None]
